FAERS Safety Report 10558541 (Version 1)
Quarter: 2014Q4

REPORT INFORMATION
  Report Type: Spontaneous
  Country: US (occurrence: US)
  Receive Date: 20141031
  Receipt Date: 20141031
  Transmission Date: 20150529
  Serious: Yes (Hospitalization)
  Sender: FDA-Public Use
  Company Number: US-TEVA-519052USA

PATIENT
  Sex: Female

DRUGS (4)
  1. BENDAMUSTINE HYDROCHLORIDE [Suspect]
     Active Substance: BENDAMUSTINE HYDROCHLORIDE
     Indication: CHRONIC LYMPHOCYTIC LEUKAEMIA
     Dosage: UNK, UNKNOWN FREQ.
     Route: 042
     Dates: start: 20101130, end: 20101229
  2. RITUXIMAB [Suspect]
     Active Substance: RITUXIMAB
     Indication: CHRONIC LYMPHOCYTIC LEUKAEMIA
     Dosage: UNK, UNKNOWN FREQ.
     Route: 065
     Dates: start: 20101130, end: 20101229
  3. RITUXIMAB [Suspect]
     Active Substance: RITUXIMAB
     Dosage: UNK, UNKNOWN FREQ.
     Route: 065
     Dates: start: 20140818
  4. RITUXIMAB [Suspect]
     Active Substance: RITUXIMAB
     Dosage: UNK UNK, UNKNOWN FREQ.
     Route: 065
     Dates: start: 20110208, end: 20130212

REACTIONS (1)
  - Neutropenia [Unknown]
